FAERS Safety Report 9096287 (Version 2)
Quarter: 2013Q1

REPORT INFORMATION
  Report Type: Spontaneous
  Country: BE (occurrence: BE)
  Receive Date: 20130207
  Receipt Date: 20130221
  Transmission Date: 20140127
  Serious: Yes (Death, Other)
  Sender: FDA-Public Use
  Company Number: BE-ROCHE-1188556

PATIENT
  Age: 49 Year
  Sex: Female
  Weight: 52 kg

DRUGS (17)
  1. HERCEPTIN [Suspect]
     Indication: BREAST CANCER METASTATIC
     Route: 065
     Dates: start: 200801
  2. HERCEPTIN [Suspect]
     Route: 065
     Dates: start: 200805
  3. HERCEPTIN [Suspect]
     Route: 065
     Dates: start: 200806, end: 200807
  4. HERCEPTIN [Suspect]
     Route: 065
     Dates: start: 200906
  5. XELODA [Suspect]
     Indication: BREAST CANCER METASTATIC
     Route: 065
  6. ADO-TRASTUZUMAB EMTANSINE [Suspect]
     Indication: BREAST CANCER METASTATIC
     Dosage: 160 MG SINGLE USE VIAL
     Route: 042
  7. LAROTAXEL [Suspect]
     Indication: BREAST CANCER METASTATIC
     Route: 065
     Dates: start: 200801
  8. LAROTAXEL [Suspect]
     Route: 065
     Dates: start: 200805
  9. TAXOTERE [Suspect]
     Indication: BREAST CANCER METASTATIC
     Route: 065
     Dates: start: 200801
  10. TAXOL [Suspect]
     Indication: BREAST CANCER METASTATIC
     Route: 065
     Dates: start: 200806, end: 200807
  11. ARIMIDEX [Suspect]
     Indication: BREAST CANCER METASTATIC
     Route: 065
     Dates: start: 200811, end: 201107
  12. NAVELBINE [Suspect]
     Indication: BREAST CANCER METASTATIC
     Route: 065
  13. LAPATINIB [Suspect]
     Indication: BREAST CANCER METASTATIC
     Route: 065
  14. AROMASIN [Suspect]
     Indication: BREAST CANCER METASTATIC
     Route: 065
  15. EPIRUBICIN [Suspect]
     Indication: BREAST CANCER METASTATIC
     Route: 065
     Dates: start: 200802, end: 200804
  16. CYCLOPHOSPHAMIDE [Suspect]
     Indication: BREAST CANCER METASTATIC
     Route: 065
     Dates: start: 200801
  17. CYCLOPHOSPHAMIDE [Suspect]
     Route: 065
     Dates: start: 200802, end: 200804

REACTIONS (3)
  - Disease progression [Not Recovered/Not Resolved]
  - Back pain [Unknown]
  - Death [Fatal]
